FAERS Safety Report 17289664 (Version 1)
Quarter: 2020Q1

REPORT INFORMATION
  Report Type: Spontaneous
  Country: JP (occurrence: JP)
  Receive Date: 20200120
  Receipt Date: 20200120
  Transmission Date: 20200409
  Serious: Yes (Other)
  Sender: FDA-Public Use
  Company Number: JP-UCBSA-2020002446

PATIENT
  Age: 32 Year
  Sex: Male

DRUGS (1)
  1. E KEPPRA [Suspect]
     Active Substance: LEVETIRACETAM
     Indication: PRODUCT USED FOR UNKNOWN INDICATION
     Dosage: 2250 MG, DAILY
     Route: 048

REACTIONS (6)
  - Seizure [Unknown]
  - Palpitations [Unknown]
  - Abnormal behaviour [Unknown]
  - Dyspnoea [Unknown]
  - Aphasia [Unknown]
  - Hypoaesthesia [Unknown]
